FAERS Safety Report 6757921-4 (Version None)
Quarter: 2010Q2

REPORT INFORMATION
  Report Type: 
  Country: None (occurrence: None)
  Receive Date: 20100607
  Receipt Date: 20100528
  Transmission Date: 20101027
  Serious: Yes (Hospitalization)
  Sender: FDA-Public Use
  Company Number: CH-BRISTOL-MYERS SQUIBB COMPANY-15130701

PATIENT
  Age: 11 Year
  Sex: Male
  Weight: 35 kg

DRUGS (11)
  1. CIPROFLOXACIN [Suspect]
     Indication: CYSTIC FIBROSIS
     Route: 041
     Dates: start: 20100427, end: 20100503
  2. AMIKACIN SULFATE [Suspect]
     Indication: CYSTIC FIBROSIS
     Route: 041
     Dates: start: 20100427, end: 20100503
  3. OMEPRAZOLE [Concomitant]
     Route: 048
  4. KONAKION [Concomitant]
     Indication: HAEMOPTYSIS
     Route: 048
     Dates: start: 20100428
  5. URSODIOL [Concomitant]
     Indication: CYSTIC FIBROSIS
     Route: 048
  6. MALTOFER [Concomitant]
     Indication: ANAEMIA
     Route: 048
  7. ACETYLCYSTEINE [Concomitant]
     Indication: CYSTIC FIBROSIS
     Route: 048
  8. CREON [Concomitant]
     Indication: CYSTIC FIBROSIS
     Route: 048
  9. PULMOZYME [Concomitant]
     Indication: CYSTIC FIBROSIS
     Route: 055
  10. VENTOLIN [Concomitant]
     Route: 055
  11. PULMICORT [Concomitant]
     Route: 055

REACTIONS (1)
  - NEUTROPENIA [None]
